FAERS Safety Report 5864177-3 (Version None)
Quarter: 2008Q3

REPORT INFORMATION
  Report Type: 
  Country: None (occurrence: None)
  Receive Date: 20080829
  Receipt Date: 20080820
  Transmission Date: 20090109
  Serious: Yes (Hospitalization)
  Sender: FDA-Public Use
  Company Number: AU-EISAI MEDIAL RESEARCH-E3810-02090-SPO-AU

PATIENT
  Sex: Male

DRUGS (3)
  1. E3810 (RABEPRAZOLE) [Suspect]
     Indication: DYSPEPSIA
     Route: 048
  2. LIPITOR [Concomitant]
  3. ASPIRIN [Concomitant]

REACTIONS (7)
  - CARDIAC STRESS TEST ABNORMAL [None]
  - CORONARY ARTERY BYPASS [None]
  - DYSPNOEA [None]
  - FEELING ABNORMAL [None]
  - FEELING HOT [None]
  - HYPERHIDROSIS [None]
  - LOSS OF CONSCIOUSNESS [None]
